FAERS Safety Report 14279942 (Version 1)
Quarter: 2017Q4

REPORT INFORMATION
  Report Type: Report from Study
  Country: NZ (occurrence: NZ)
  Receive Date: 20171212
  Receipt Date: 20171212
  Transmission Date: 20180321
  Serious: Yes (Other)
  Sender: FDA-Public Use
  Company Number: PHHY2016NZ090989

PATIENT
  Sex: Male

DRUGS (1)
  1. OMNITROPE [Suspect]
     Active Substance: SOMATROPIN
     Indication: GROWTH HORMONE DEFICIENCY
     Route: 065

REACTIONS (5)
  - Hyperhidrosis [Unknown]
  - Psychotic disorder [Recovering/Resolving]
  - Photophobia [Unknown]
  - Hallucination, auditory [Recovering/Resolving]
  - Insomnia [Recovering/Resolving]
